FAERS Safety Report 14953036 (Version 2)
Quarter: 2018Q3

REPORT INFORMATION
  Report Type: Spontaneous
  Country: JP (occurrence: JP)
  Receive Date: 20180530
  Receipt Date: 20180814
  Transmission Date: 20181010
  Serious: Yes (Hospitalization)
  Sender: FDA-Public Use
  Company Number: JP-BAYER-2018-097347

PATIENT
  Age: 82 Year
  Sex: Male

DRUGS (6)
  1. CORTICOSTEROID NOS [Concomitant]
     Active Substance: CORTICOSTEROID NOS
  2. XTANDI [Concomitant]
     Active Substance: ENZALUTAMIDE
  3. EDOXABAN [Concomitant]
     Active Substance: EDOXABAN TOSYLATE
  4. XOFIGO [Suspect]
     Active Substance: RADIUM RA-223 DICHLORIDE
     Indication: HORMONE-REFRACTORY PROSTATE CANCER
     Dosage: 1 DF, ONCE
     Route: 042
     Dates: start: 20180328, end: 20180328
  5. XOFIGO [Suspect]
     Active Substance: RADIUM RA-223 DICHLORIDE
     Indication: METASTASES TO BONE
     Dosage: 1 DF, ONCE
     Route: 042
     Dates: start: 20180502, end: 20180502
  6. XOFIGO [Suspect]
     Active Substance: RADIUM RA-223 DICHLORIDE
     Indication: HORMONE-REFRACTORY PROSTATE CANCER
     Dosage: 1 DF, ONCE
     Route: 042
     Dates: start: 20180718, end: 20180718

REACTIONS (1)
  - Cholangitis [Recovered/Resolved]

NARRATIVE: CASE EVENT DATE: 20180521
